FAERS Safety Report 12105344 (Version 2)
Quarter: 2016Q1

REPORT INFORMATION
  Report Type: Spontaneous
  Country: IT (occurrence: IT)
  Receive Date: 20160223
  Receipt Date: 20160324
  Transmission Date: 20160526
  Serious: Yes (Hospitalization)
  Sender: FDA-Public Use
  Company Number: IT-JNJFOC-20160215132

PATIENT
  Age: 67 Year
  Sex: Female

DRUGS (11)
  1. LEVOXIGRAM [Suspect]
     Active Substance: LEVOFLOXACIN
     Indication: BRONCHITIS
     Route: 048
     Dates: start: 20160208, end: 20160214
  2. PANTOPRAZOLE [Concomitant]
     Active Substance: PANTOPRAZOLE SODIUM
     Indication: GASTROOESOPHAGEAL REFLUX DISEASE
     Route: 048
  3. MEDROL [Suspect]
     Active Substance: METHYLPREDNISOLONE
     Indication: SCIATICA
     Route: 048
     Dates: start: 20160202, end: 20160211
  4. MUCOSOLVAN [Suspect]
     Active Substance: AMBROXOL HYDROCHLORIDE
     Indication: BRONCHITIS
     Route: 055
     Dates: start: 20160208, end: 20160214
  5. LYRICA [Suspect]
     Active Substance: PREGABALIN
     Indication: SCIATICA
     Route: 048
     Dates: start: 20160202, end: 20160214
  6. ALLOPURINOL. [Concomitant]
     Active Substance: ALLOPURINOL
     Indication: HYPERURICAEMIA
     Route: 048
  7. SPORANOX [Suspect]
     Active Substance: ITRACONAZOLE
     Indication: ONYCHOMYCOSIS
     Route: 048
     Dates: start: 20160204, end: 20160214
  8. MEDROL [Suspect]
     Active Substance: METHYLPREDNISOLONE
     Indication: SCIATICA
     Route: 048
     Dates: start: 20160212, end: 20160214
  9. EXINEF [Suspect]
     Active Substance: ETORICOXIB
     Indication: SCIATICA
     Route: 048
     Dates: start: 20160202, end: 20160214
  10. MODURETIC 5-50 [Concomitant]
     Active Substance: AMILORIDE HYDROCHLORIDE\HYDROCHLOROTHIAZIDE
     Indication: HYPERTENSION
     Route: 048
  11. TACHIPIRINA [Concomitant]
     Active Substance: ACETAMINOPHEN
     Indication: BRONCHITIS
     Route: 048
     Dates: start: 20160208, end: 20160214

REACTIONS (4)
  - Peripheral swelling [Recovered/Resolved]
  - Hyperglycaemia [Recovered/Resolved]
  - Toxic skin eruption [Recovered/Resolved]
  - Pruritus [Recovered/Resolved]

NARRATIVE: CASE EVENT DATE: 20160213
